FAERS Safety Report 4292196-X (Version None)
Quarter: 2004Q1

REPORT INFORMATION
  Report Type: 
  Country: None (occurrence: None)
  Receive Date: 20040126
  Receipt Date: 20031118
  Transmission Date: 20041129
  Serious: No
  Sender: FDA-Public Use
  Company Number: USA031152873

PATIENT
  Age: 73 Year
  Sex: Female
  Weight: 61 kg

DRUGS (12)
  1. FORTEO [Suspect]
     Indication: OSTEOPOROSIS
     Dates: start: 20031114, end: 20031115
  2. MAGNESIUM MALATE [Concomitant]
  3. GLUCOSAMINE, CHONDROITIN [Concomitant]
  4. VITAMIN C [Concomitant]
  5. CO-Q10 (UBIDECARENONE) [Concomitant]
  6. VITAMIN E [Concomitant]
  7. VITAMIN D [Concomitant]
  8. VITAMIN B COMPLEX CAP [Concomitant]
  9. CARDIZEM [Concomitant]
  10. CALCIUM [Concomitant]
  11. VALIUM [Concomitant]
  12. LIDODERM (LIDOCAINE) [Concomitant]

REACTIONS (6)
  - DIZZINESS [None]
  - FEELING ABNORMAL [None]
  - HEADACHE [None]
  - NAUSEA [None]
  - SENSORY DISTURBANCE [None]
  - TINNITUS [None]
